FAERS Safety Report 16477543 (Version 1)
Quarter: 2019Q2

REPORT INFORMATION
  Report Type: Report from Study
  Country: ZA (occurrence: ZA)
  Receive Date: 20190626
  Receipt Date: 20190626
  Transmission Date: 20190711
  Serious: Yes (Other)
  Sender: FDA-Public Use
  Company Number: ZA-SA-2019SA108779

PATIENT
  Age: 34 Year
  Sex: Male

DRUGS (4)
  1. NO STUDY DRUG GIVEN [Suspect]
     Active Substance: UNSPECIFIED INGREDIENT
  2. GLUCOPHAGE [Concomitant]
     Active Substance: METFORMIN HYDROCHLORIDE
     Dosage: 1000 MG, BID (AFTER SUPPER-AFTER BREAKFAST)
     Dates: start: 20190312
  3. EPILIM [Concomitant]
     Active Substance: VALPROATE SODIUM
     Dosage: BS-300 MG | BS-500 MG | BB-300 MG | BB-500 MG
  4. TOUJEO [Suspect]
     Active Substance: INSULIN GLARGINE
     Dosage: AB-43 UNITS | BB-48 UNITS | BB-40 UNITS
     Dates: start: 20190326

REACTIONS (10)
  - Haematochezia [Not Recovered/Not Resolved]
  - Glycosylated haemoglobin increased [Unknown]
  - Inappropriate schedule of product administration [Unknown]
  - Swollen tongue [Not Recovered/Not Resolved]
  - Renal pain [Not Recovered/Not Resolved]
  - Dry mouth [Not Recovered/Not Resolved]
  - Insomnia [Not Recovered/Not Resolved]
  - Malaise [Not Recovered/Not Resolved]
  - Visual impairment [Not Recovered/Not Resolved]
  - Back disorder [Not Recovered/Not Resolved]

NARRATIVE: CASE EVENT DATE: 20190326
